FAERS Safety Report 7074672-X (Version None)
Quarter: 2010Q4

REPORT INFORMATION
  Report Type: 
  Country: None (occurrence: None)
  Receive Date: 20101029
  Receipt Date: 20101026
  Transmission Date: 20110411
  Serious: Yes (Hospitalization)
  Sender: FDA-Public Use
  Company Number: B0681188A

PATIENT
  Age: 35 Year
  Sex: Female

DRUGS (4)
  1. EPOPROSTENOL [Suspect]
     Route: 042
     Dates: start: 20101018, end: 20101020
  2. MIRTAZAPINE [Concomitant]
  3. DIAZEPAM [Concomitant]
  4. SALBUTAMOL [Concomitant]

REACTIONS (6)
  - DIARRHOEA [None]
  - DIZZINESS [None]
  - DYSPHONIA [None]
  - DYSPNOEA [None]
  - LIP SWELLING [None]
  - VOMITING [None]
